FAERS Safety Report 7102919-X (Version None)
Quarter: 2010Q4

REPORT INFORMATION
  Report Type: 
  Country: None (occurrence: None)
  Receive Date: 20101108
  Receipt Date: 20101011
  Transmission Date: 20110411
  Serious: Yes (Death, Life-Threatening, Hospitalization, Other)
  Sender: FDA-Public Use
  Company Number: IT-021311

PATIENT
  Age: 76 Year
  Sex: Male

DRUGS (3)
  1. CHLORAMBUCIL (UNKNOWN [Suspect]
     Indication: CHRONIC LYMPHOCYTIC LEUKAEMIA
     Dosage: (10 MG/M2) ORAL
     Route: 048
     Dates: start: 20100118
  2. OFATUMUMAB (INJECTION [Suspect]
     Indication: CHRONIC LYMPHOCYTIC LEUKAEMIA
     Dosage: SEE IMAGE
     Route: 042
     Dates: start: 20100118
  3. OFATUMUMAB (INJECTION [Suspect]
     Indication: CHRONIC LYMPHOCYTIC LEUKAEMIA
     Dosage: SEE IMAGE
     Route: 042
     Dates: start: 20100118

REACTIONS (10)
  - ASTHENIA [None]
  - CYTOMEGALOVIRUS INFECTION [None]
  - DYSPNOEA [None]
  - HYPOTENSION [None]
  - MALAISE [None]
  - PNEUMONIA [None]
  - PYREXIA [None]
  - RESPIRATORY FAILURE [None]
  - SEPTIC SHOCK [None]
  - TROPONIN INCREASED [None]
